FAERS Safety Report 5390950-4 (Version None)
Quarter: 2007Q3

REPORT INFORMATION
  Report Type: 
  Country: None (occurrence: None)
  Receive Date: 20070716
  Receipt Date: 20070227
  Transmission Date: 20080115
  Serious: Yes (Death, Hospitalization)
  Sender: FDA-Public Use
  Company Number: MPS1-10660

PATIENT
  Age: 5 Year
  Sex: Female
  Weight: 15.5 kg

DRUGS (1)
  1. ALDURAZYME [Suspect]
     Indication: MUCOPOLYSACCHARIDOSIS I
     Dosage: 0.58 MG/KG QWK IV
     Route: 042
     Dates: start: 20060101, end: 20070213

REACTIONS (5)
  - ARACHNOID CYST [None]
  - CERVICAL VERTEBRAL FRACTURE [None]
  - COMPRESSION FRACTURE [None]
  - DISEASE RECURRENCE [None]
  - RESPIRATORY DISTRESS [None]
